FAERS Safety Report 23983984 (Version 3)
Quarter: 2025Q3

REPORT INFORMATION
  Report Type: Report from Study
  Country: US (occurrence: US)
  Receive Date: 20240618
  Receipt Date: 20250816
  Transmission Date: 20251020
  Serious: Yes (Hospitalization, Other)
  Sender: ALEXION PHARMACEUTICALS
  Company Number: US-ALXN-202406GLO000530US

PATIENT
  Age: 68 Year
  Sex: Male

DRUGS (16)
  1. SOLIRIS [Suspect]
     Active Substance: ECULIZUMAB
     Dosage: 900 MILLIGRAM, Q2W
     Dates: start: 20221102, end: 20240530
  2. SOLIRIS [Suspect]
     Active Substance: ECULIZUMAB
     Dosage: 1200 MILLIGRAM, Q2W
     Dates: start: 20220916
  3. ULTOMIRIS [Suspect]
     Active Substance: RAVULIZUMAB-CWVZ
     Dosage: 2400 MILLIGRAM, Q2W
     Route: 065
     Dates: start: 20240829, end: 20240829
  4. ULTOMIRIS [Suspect]
     Active Substance: RAVULIZUMAB-CWVZ
     Dosage: 3000 MILLIGRAM, Q8W
     Dates: start: 20240916
  5. PROPRANOLOL [Concomitant]
     Active Substance: PROPRANOLOL HYDROCHLORIDE
     Indication: Essential tremor
     Dosage: 10 MILLIGRAM, QD
  6. DULOXETINE [Concomitant]
     Active Substance: DULOXETINE
     Indication: Depression
     Dosage: 60 MILLIGRAM, QD
  7. DULOXETINE [Concomitant]
     Active Substance: DULOXETINE
     Dosage: 1 MILLIGRAM, QD
  8. ARIPIPRAZOLE [Concomitant]
     Active Substance: ARIPIPRAZOLE
     Indication: Depression
     Dosage: 5 MILLIGRAM, QD
  9. HYDROCODONE BITARTRATE AND ACETAMINOPHEN [Concomitant]
     Active Substance: ACETAMINOPHEN\HYDROCODONE BITARTRATE
     Indication: Pain
     Dosage: 7.5 MILLIGRAM, TID
  10. GABAPENTIN [Concomitant]
     Active Substance: GABAPENTIN
     Indication: Pain
     Dosage: 100 MILLIGRAM, QD
  11. TRAZODONE [Concomitant]
     Active Substance: TRAZODONE HYDROCHLORIDE
     Indication: Sleep disorder
     Dosage: 200 MILLIGRAM, QD
  12. PRIMIDONE [Concomitant]
     Active Substance: PRIMIDONE
     Indication: Essential tremor
     Dosage: 25 MILLIGRAM, QD
     Dates: start: 20240301
  13. OXYGEN [Concomitant]
     Active Substance: OXYGEN
     Indication: Pneumonia
  14. ALBUTEROL [Concomitant]
     Active Substance: ALBUTEROL
     Indication: Chronic obstructive pulmonary disease
     Dosage: 90 MICROGRAM, TID
     Route: 065
     Dates: start: 202402
  15. ROFLUMILAST [Concomitant]
     Active Substance: ROFLUMILAST
     Indication: Chronic obstructive pulmonary disease
     Dosage: 250 MICROGRAM, QD
     Dates: start: 202402
  16. BREZTRI [Concomitant]
     Active Substance: BUDESONIDE\FORMOTEROL\GLYCOPYRROLATE
     Dosage: UNK MICROGRAM, BID
     Route: 065

REACTIONS (1)
  - Pneumonia [Recovered/Resolved with Sequelae]

NARRATIVE: CASE EVENT DATE: 20240226
